FAERS Safety Report 24894903 (Version 1)
Quarter: 2025Q1

REPORT INFORMATION
  Report Type: Spontaneous
  Country: JP (occurrence: JP)
  Receive Date: 20250128
  Receipt Date: 20250128
  Transmission Date: 20250409
  Serious: Yes (Other)
  Sender: PFIZER
  Company Number: JP-PFIZER INC-PV202500010023

PATIENT
  Age: 77 Year
  Sex: Male
  Weight: 51 kg

DRUGS (19)
  1. PACLITAXEL [Suspect]
     Active Substance: PACLITAXEL
     Indication: Hypopharyngeal cancer
     Dosage: 120 MG, DAILY
     Route: 042
     Dates: start: 20241009, end: 20241009
  2. PACLITAXEL [Suspect]
     Active Substance: PACLITAXEL
     Dosage: 120 MG, DAILY
     Route: 042
     Dates: start: 20241030, end: 20241030
  3. PACLITAXEL [Suspect]
     Active Substance: PACLITAXEL
     Dosage: 120 MG, DAILY
     Route: 042
     Dates: start: 20241106, end: 20241106
  4. PACLITAXEL [Suspect]
     Active Substance: PACLITAXEL
     Dosage: 120 MG, DAILY
     Route: 042
     Dates: start: 20241113, end: 20241113
  5. PACLITAXEL [Suspect]
     Active Substance: PACLITAXEL
     Dosage: 120 MG, DAILY
     Route: 042
     Dates: start: 20241127, end: 20241127
  6. PACLITAXEL [Suspect]
     Active Substance: PACLITAXEL
     Dosage: 120 MG, DAILY
     Route: 042
     Dates: start: 20241204, end: 20241204
  7. PACLITAXEL [Suspect]
     Active Substance: PACLITAXEL
     Dosage: 120 MG, DAILY
     Route: 042
     Dates: start: 20241211, end: 20241211
  8. PACLITAXEL [Suspect]
     Active Substance: PACLITAXEL
     Dosage: 120 MG, DAILY
     Route: 042
     Dates: start: 20241218, end: 20241218
  9. PACLITAXEL [Suspect]
     Active Substance: PACLITAXEL
     Dosage: 120 MG, DAILY
     Route: 042
     Dates: start: 20241225, end: 20241225
  10. PACLITAXEL [Suspect]
     Active Substance: PACLITAXEL
     Dosage: 120 MG, DAILY
     Route: 042
     Dates: start: 20250115, end: 20250115
  11. EDOXABAN TOSYLATE [Concomitant]
     Active Substance: EDOXABAN TOSYLATE
     Dosage: 30 MG, 1X/DAY
  12. BISOPROLOL FUMARATE [Concomitant]
     Active Substance: BISOPROLOL FUMARATE
     Dosage: 2.5 MG, 1X/DAY
  13. LANSOPRAZOLE [Concomitant]
     Active Substance: LANSOPRAZOLE
     Dosage: 15 MG, 1X/DAY
  14. JARDIANCE [Concomitant]
     Active Substance: EMPAGLIFLOZIN
     Dosage: 10 MG, 1X/DAY
  15. CALBLOCK [AZELNIDIPINE] [Concomitant]
     Dosage: 16 MG, 1X/DAY
  16. MICARDIS [Concomitant]
     Active Substance: TELMISARTAN
     Dosage: 20 MG, 1X/DAY, NO CHANGE
     Dates: start: 202403
  17. LEVOTHYROXINE SODIUM [Concomitant]
     Active Substance: LEVOTHYROXINE SODIUM
     Dosage: 50 UG, 1X/DAY
     Dates: start: 202408
  18. MIYA-BM [Concomitant]
     Active Substance: CLOSTRIDIUM BUTYRICUM SPORES STRAIN M-55
     Dosage: 1 DF, 3X/DAY
     Dates: start: 20241009
  19. KAYEXALATE [Concomitant]
     Active Substance: SODIUM POLYSTYRENE SULFONATE
     Dosage: 1 DF, 3X/DAY, DRY SYRUP
     Dates: start: 20241218

REACTIONS (2)
  - Macular degeneration [Not Recovered/Not Resolved]
  - Macular oedema [Not Recovered/Not Resolved]

NARRATIVE: CASE EVENT DATE: 20240101
